FAERS Safety Report 23256175 (Version 6)
Quarter: 2024Q1

REPORT INFORMATION
  Report Type: Report from Study
  Country: DE (occurrence: DE)
  Receive Date: 20231204
  Receipt Date: 20240102
  Transmission Date: 20240410
  Serious: Yes (Other)
  Sender: FDA-Public Use
  Company Number: DE-BoehringerIngelheim-2023-BI-275321

PATIENT
  Age: 53 Year
  Sex: Female
  Weight: 70 kg

DRUGS (2)
  1. NINTEDANIB [Suspect]
     Active Substance: NINTEDANIB
     Indication: Lung adenocarcinoma
     Route: 048
     Dates: start: 20230805, end: 20231110
  2. DOCETAXEL [Suspect]
     Active Substance: DOCETAXEL\DOCETAXEL ANHYDROUS
     Indication: Lung adenocarcinoma
     Dosage: FORM OF ADMIN: LIQUID
     Route: 042
     Dates: start: 20230804, end: 20231124

REACTIONS (2)
  - Hepatitis viral [Not Recovered/Not Resolved]
  - Vomiting [Recovered/Resolved]

NARRATIVE: CASE EVENT DATE: 20231110
